FAERS Safety Report 11939508 (Version 1)
Quarter: 2016Q1

REPORT INFORMATION
  Report Type: Spontaneous
  Country: None (occurrence: US)
  Receive Date: 20160122
  Receipt Date: 20160122
  Transmission Date: 20160526
  Serious: Yes (Death, Hospitalization)
  Sender: FDA-Public Use
  Company Number: US-INSYS THERAPEUTICS, INC-INS201601-000025

PATIENT
  Age: 62 Year
  Sex: Male
  Weight: 81.64 kg

DRUGS (2)
  1. CIPRO [Concomitant]
     Active Substance: CIPROFLOXACIN HYDROCHLORIDE
  2. SUBSYS [Suspect]
     Active Substance: FENTANYL
     Indication: BREAKTHROUGH PAIN
     Route: 060

REACTIONS (5)
  - Cerebrovascular accident [Fatal]
  - Tumour rupture [Fatal]
  - Drug ineffective [Unknown]
  - Dysstasia [Unknown]
  - Fall [Unknown]

NARRATIVE: CASE EVENT DATE: 20151217
